FAERS Safety Report 4937613-4 (Version None)
Quarter: 2006Q1

REPORT INFORMATION
  Report Type: 
  Country: None (occurrence: None)
  Receive Date: 20060309
  Receipt Date: 20060301
  Transmission Date: 20060701
  Serious: Yes (Hospitalization)
  Sender: FDA-Public Use
  Company Number: US-MERCK-0603USA00477

PATIENT
  Age: 57 Year
  Sex: Male
  Weight: 123 kg

DRUGS (2)
  1. VIOXX [Suspect]
     Indication: BACK PAIN
     Route: 048
     Dates: start: 20020101, end: 20041109
  2. EXTRA STRENGTH TYLENOL [Concomitant]
     Route: 065

REACTIONS (1)
  - MYOCARDIAL ISCHAEMIA [None]
